FAERS Safety Report 20087029 (Version 1)
Quarter: 2021Q4

REPORT INFORMATION
  Report Type: Spontaneous
  Country: CA (occurrence: CA)
  Receive Date: 20211118
  Receipt Date: 20211118
  Transmission Date: 20220303
  Serious: Yes (Other)
  Sender: FDA-Public Use
  Company Number: CA-TEVA-2021-CA-1977732

PATIENT
  Age: 94 Year
  Sex: Female

DRUGS (2)
  1. IRBESARTAN [Suspect]
     Active Substance: IRBESARTAN
     Indication: Hypertension
     Dosage: 75 MILLIGRAM DAILY;
     Route: 048
  2. IRBESARTAN [Suspect]
     Active Substance: IRBESARTAN
     Indication: Chronic kidney disease

REACTIONS (1)
  - Rash [Recovered/Resolved]
